FAERS Safety Report 12609723 (Version 6)
Quarter: 2017Q1

REPORT INFORMATION
  Report Type: Spontaneous
  Country: CA (occurrence: CA)
  Receive Date: 20160801
  Receipt Date: 20170302
  Transmission Date: 20170428
  Serious: Yes (Other)
  Sender: FDA-Public Use
  Company Number: CA-AMGEN-CANSP2016098080

PATIENT
  Age: 60 Year
  Sex: Female

DRUGS (9)
  1. ENBREL [Suspect]
     Active Substance: ETANERCEPT
     Indication: RHEUMATOID ARTHRITIS
     Dosage: UNK
     Route: 058
  2. METHOTREXATE SODIUM. [Suspect]
     Active Substance: METHOTREXATE SODIUM
     Dosage: 25 MG, QWK
     Route: 065
  3. HYDROXYCHLOROQUINE SULFATE. [Suspect]
     Active Substance: HYDROXYCHLOROQUINE SULFATE
     Indication: RHEUMATOID ARTHRITIS
     Dosage: 400 MG, QD
     Route: 065
     Dates: start: 201507
  4. HYDROXYCHLOROQUINE SULFATE. [Suspect]
     Active Substance: HYDROXYCHLOROQUINE SULFATE
     Dosage: 400 MG, QD
     Route: 065
  5. XELJANZ [Concomitant]
     Active Substance: TOFACITINIB CITRATE
     Indication: RHEUMATOID ARTHRITIS
     Dosage: 5 MG, BID
     Route: 048
     Dates: start: 20160906
  6. METHOTREXATE SODIUM. [Suspect]
     Active Substance: METHOTREXATE SODIUM
     Indication: RHEUMATOID ARTHRITIS
     Dosage: 25 MG, QWK
     Route: 065
     Dates: start: 201601
  7. CELEBREX [Suspect]
     Active Substance: CELECOXIB
     Dosage: 200 MG, AS NECESSARY
     Route: 048
  8. HYDROMORPHONE HYDROCHLORIDE. [Concomitant]
     Active Substance: HYDROMORPHONE HYDROCHLORIDE
     Dosage: UNK UNK, AS NECESSARY
     Route: 065
  9. CELEBREX [Suspect]
     Active Substance: CELECOXIB
     Indication: RHEUMATOID ARTHRITIS
     Dosage: 200 MG, BID
     Route: 048

REACTIONS (7)
  - Red blood cell sedimentation rate abnormal [Unknown]
  - Rheumatoid arthritis [Unknown]
  - C-reactive protein abnormal [Unknown]
  - Drug ineffective [Unknown]
  - Nephrolithiasis [Unknown]
  - Synovitis [Unknown]
  - Rheumatoid factor positive [Unknown]

NARRATIVE: CASE EVENT DATE: 2016
